FAERS Safety Report 9358138 (Version 5)
Quarter: 2013Q4

REPORT INFORMATION
  Report Type: Report from Study
  Country: CA (occurrence: CA)
  Receive Date: 20130620
  Receipt Date: 20131022
  Transmission Date: 20140711
  Serious: Yes (Hospitalization, Other)
  Sender: FDA-Public Use
  Company Number: CA-JNJFOC-20130415990

PATIENT
  Age: 41 Year
  Sex: Male
  Weight: 88.2 kg

DRUGS (4)
  1. REMICADE [Suspect]
     Indication: CROHN^S DISEASE
     Route: 042
     Dates: start: 20130319
  2. REMICADE [Suspect]
     Indication: CROHN^S DISEASE
     Dosage: ONE RESCUE DOSE GIVEN POST INDUCTION
     Route: 042
  3. REMICADE [Suspect]
     Indication: CROHN^S DISEASE
     Route: 042
  4. REMICADE [Suspect]
     Indication: CROHN^S DISEASE
     Route: 042
     Dates: start: 20130131

REACTIONS (3)
  - Intestinal stenosis [Recovering/Resolving]
  - Weight decreased [Unknown]
  - Fatigue [Recovering/Resolving]
